FAERS Safety Report 5674900-9 (Version None)
Quarter: 2008Q1

REPORT INFORMATION
  Report Type: 
  Country: None (occurrence: None)
  Receive Date: 20080320
  Receipt Date: 20080310
  Transmission Date: 20080703
  Serious: Yes (Other)
  Sender: FDA-Public Use
  Company Number: TH-PFIZER INC-2008018878

PATIENT
  Age: 72 Year
  Sex: Male

DRUGS (2)
  1. VIAGRA [Suspect]
     Route: 048
  2. VITAMIN CAP [Concomitant]
     Route: 048

REACTIONS (2)
  - MENIERE'S DISEASE [None]
  - VERTIGO [None]
